FAERS Safety Report 23542872 (Version 2)
Quarter: 2024Q1

REPORT INFORMATION
  Report Type: Spontaneous
  Country: JP (occurrence: JP)
  Receive Date: 20240220
  Receipt Date: 20240326
  Transmission Date: 20240410
  Serious: Yes (Hospitalization, Other)
  Sender: FDA-Public Use
  Company Number: JP-ZAMBON-202400430COR

PATIENT
  Age: 9 Decade
  Sex: Female

DRUGS (5)
  1. SAFINAMIDE [Suspect]
     Active Substance: SAFINAMIDE
     Indication: Parkinson^s disease
     Route: 048
  2. SAFINAMIDE [Suspect]
     Active Substance: SAFINAMIDE
     Route: 048
  3. ISTRADEFYLLINE [Concomitant]
     Active Substance: ISTRADEFYLLINE
     Indication: Parkinson^s disease
     Dosage: NOT PROVIDED
  4. MIRAPEX [Concomitant]
     Active Substance: PRAMIPEXOLE DIHYDROCHLORIDE
     Indication: Parkinson^s disease
     Dosage: NOT PROVIDED
  5. NEUPRO [Concomitant]
     Active Substance: ROTIGOTINE
     Dosage: NOT PROVIDED

REACTIONS (7)
  - Hypothermia [Recovered/Resolved]
  - Dysarthria [Recovered/Resolved]
  - General physical health deterioration [Recovered/Resolved]
  - Fracture [Unknown]
  - Fall [Unknown]
  - Immobilisation syndrome [Unknown]
  - Dyskinesia [Unknown]
